FAERS Safety Report 8781505 (Version 1)
Quarter: 2012Q4

REPORT INFORMATION
  Report Type: 
  Country: NL (occurrence: NL)
  Receive Date: 20120913
  Receipt Date: 20120913
  Transmission Date: 20130627
  Serious: Yes (Hospitalization)
  Sender: FDA-Public Use
  Company Number: NL-PFIZER INC-2012222512

PATIENT
  Age: 60 Year
  Sex: Female
  Weight: 85 kg

DRUGS (7)
  1. GENOTROPIN [Suspect]
     Dosage: 1.2 mg, 1x/day, 7inj(wk
     Route: 058
     Dates: start: 20070705
  2. DESMOPRESSIN [Concomitant]
     Indication: BLOOD ANTIDIURETIC HORMONE DECREASED
     Dosage: UNK
     Dates: start: 19960415
  3. MARVELON [Concomitant]
     Indication: BLOOD LUTEINISING HORMONE DECREASED
     Dosage: UNK
     Dates: start: 19961115
  4. MARVELON [Concomitant]
     Indication: BLOOD FOLLICLE STIMULATING HORMONE DECREASED
  5. MARVELON [Concomitant]
     Indication: HYPOGONADISM FEMALE
  6. CORTISONE ACETATE [Concomitant]
     Indication: BLOOD CORTICOTROPHIN DECREASED
     Dosage: UNK
     Dates: start: 19960315
  7. LEVOTHYROXINE [Concomitant]
     Indication: BLOOD THYROID STIMULATING HORMONE DECREASED
     Dosage: UNK
     Dates: start: 19960415

REACTIONS (1)
  - Diarrhoea [Unknown]
